FAERS Safety Report 4552012-5 (Version None)
Quarter: 2005Q1

REPORT INFORMATION
  Report Type: 
  Country: None (occurrence: None)
  Receive Date: 20050112
  Receipt Date: 20050104
  Transmission Date: 20050727
  Serious: Yes (Hospitalization)
  Sender: FDA-Public Use
  Company Number: US-2005-000084

PATIENT
  Age: 64 Year
  Sex: Female

DRUGS (2)
  1. BETASERON [Suspect]
     Indication: RELAPSING-REMITTING MULTIPLE SCLEROSIS
     Dosage: 8 MIU, EVERY 2D, SUBCUTANEOUS
     Route: 058
     Dates: start: 19940426
  2. SOLU-MEDROL [Suspect]
     Dosage: VIA PICC LINE, INTRAVENOUS
     Route: 042
     Dates: start: 20040101, end: 20040101

REACTIONS (2)
  - ARTHRALGIA [None]
  - THROMBOSIS [None]
